FAERS Safety Report 8512143-1 (Version None)
Quarter: 2012Q2

REPORT INFORMATION
  Report Type: 
  Country: None (occurrence: None)
  Receive Date: 20120405
  Receipt Date: 20081003
  Transmission Date: 20120825
  Serious: Yes (Other)
  Sender: FDA-Public Use
  Company Number: PHEH2008US05679

PATIENT
  Age: 65 Year
  Sex: Female
  Weight: 60.3 kg

DRUGS (1)
  1. RECLAST [Suspect]
     Indication: OSTEOPOROSIS
     Dates: start: 20080617

REACTIONS (6)
  - PAIN [None]
  - MUSCULOSKELETAL STIFFNESS [None]
  - RASH [None]
  - BACK PAIN [None]
  - INSOMNIA [None]
  - PAIN IN EXTREMITY [None]
